FAERS Safety Report 15861205 (Version 2)
Quarter: 2019Q1

REPORT INFORMATION
  Report Type: Report from Study
  Country: US (occurrence: US)
  Receive Date: 20190124
  Receipt Date: 20190207
  Transmission Date: 20190417
  Serious: Yes (Other)
  Sender: FDA-Public Use
  Company Number: US-ASTRAZENECA-2019SE13107

PATIENT
  Age: 22641 Day
  Sex: Male
  Weight: 80.1 kg

DRUGS (2)
  1. BLINDED BENRALIZUMAB [Suspect]
     Active Substance: BENRALIZUMAB
     Indication: NASAL POLYPS
     Route: 058
  2. BLINDED PLACEBO [Suspect]
     Active Substance: INVESTIGATIONAL PRODUCT
     Indication: NASAL POLYPS
     Dosage: EVERY EIGHT WEEKS
     Route: 058

REACTIONS (1)
  - Wrist fracture [Unknown]

NARRATIVE: CASE EVENT DATE: 20190114
